FAERS Safety Report 15034388 (Version 1)
Quarter: 2018Q2

REPORT INFORMATION
  Report Type: Spontaneous
  Country: US (occurrence: US)
  Receive Date: 20180620
  Receipt Date: 20180620
  Transmission Date: 20180711
  Serious: No
  Sender: FDA-Public Use
  Company Number: US-009507513-1806USA002819

PATIENT
  Age: 26 Year
  Sex: Female
  Weight: 110.66 kg

DRUGS (5)
  1. NUVARING [Suspect]
     Active Substance: ETHINYL ESTRADIOL\ETONOGESTREL
     Indication: POLYCYSTIC OVARIES
  2. ALIVIUM [Concomitant]
     Active Substance: IBUPROFEN
     Dosage: UNK, PM (AS NEED)
  3. NUVARING [Suspect]
     Active Substance: ETHINYL ESTRADIOL\ETONOGESTREL
     Indication: CONTRACEPTION
     Dosage: 4 WEEKS IN, AND REINSERT A NEW ONE
     Route: 067
  4. GABAPENTIN. [Concomitant]
     Active Substance: GABAPENTIN
     Dosage: UNK
  5. LAMICTAL [Concomitant]
     Active Substance: LAMOTRIGINE
     Dosage: UNK

REACTIONS (4)
  - Product use in unapproved indication [Unknown]
  - Medical device site discomfort [Unknown]
  - Incorrect drug administration duration [Unknown]
  - Device breakage [Unknown]

NARRATIVE: CASE EVENT DATE: 20180531
